FAERS Safety Report 24163857 (Version 1)
Quarter: 2024Q3

REPORT INFORMATION
  Report Type: Spontaneous
  Country: US (occurrence: None)
  Receive Date: 20240801
  Receipt Date: 20240801
  Transmission Date: 20241016
  Serious: Yes (Life-Threatening)
  Sender: ASTRAZENECA
  Company Number: 2024A172144

PATIENT
  Sex: Male

DRUGS (1)
  1. ANDEXANET ALFA [Suspect]
     Active Substance: ANDEXANET ALFA
     Indication: Perioperative analgesia
     Route: 040

REACTIONS (3)
  - Heparin resistance [Unknown]
  - Intrapericardial thrombosis [Unknown]
  - Off label use [Unknown]
